FAERS Safety Report 21848088 (Version 5)
Quarter: 2023Q1

REPORT INFORMATION
  Report Type: Report from Study
  Country: US (occurrence: US)
  Receive Date: 20230111
  Receipt Date: 20230331
  Transmission Date: 20230417
  Serious: No
  Sender: FDA-Public Use
  Company Number: US-002147023-NVSC2023US005545

PATIENT
  Age: 50 Year
  Sex: Female

DRUGS (1)
  1. KESIMPTA [Suspect]
     Active Substance: OFATUMUMAB
     Indication: Multiple sclerosis
     Dosage: 20 MG, QMO
     Route: 058
     Dates: start: 20221114

REACTIONS (6)
  - Aphonia [Recovering/Resolving]
  - Urinary tract infection [Not Recovered/Not Resolved]
  - Neck pain [Unknown]
  - Headache [Unknown]
  - Intercepted product administration error [Recovering/Resolving]
  - Inappropriate schedule of product administration [Recovering/Resolving]

NARRATIVE: CASE EVENT DATE: 20221212
